FAERS Safety Report 4672359-1 (Version None)
Quarter: 2005Q2

REPORT INFORMATION
  Report Type: 
  Country: None (occurrence: None)
  Receive Date: 20050520
  Receipt Date: 20050512
  Transmission Date: 20051028
  Serious: Yes (Hospitalization)
  Sender: FDA-Public Use
  Company Number: 214286

PATIENT
  Age: 60 Year
  Sex: Male

DRUGS (1)
  1. MABTHERA (RITUXIMAB) CONC FOR SOLUTION FOR INFUSION [Suspect]
     Indication: LYMPHOMA
     Dosage: 375 MG/M2 INTRAVENOUS
     Route: 042

REACTIONS (4)
  - AGITATION [None]
  - CHILLS [None]
  - FEBRILE CONVULSION [None]
  - MUSCLE SPASMS [None]
